FAERS Safety Report 14666966 (Version 2)
Quarter: 2018Q2

REPORT INFORMATION
  Report Type: Spontaneous
  Country: US (occurrence: US)
  Receive Date: 20180322
  Receipt Date: 20180422
  Transmission Date: 20180711
  Serious: Yes (Other)
  Sender: FDA-Public Use
  Company Number: US-APOTEX-2018AP008137

PATIENT
  Sex: Female

DRUGS (1)
  1. FLUTICASONE PROPIONATE NASAL SPRAY USP [Suspect]
     Active Substance: FLUTICASONE PROPIONATE
     Indication: PRODUCT USED FOR UNKNOWN INDICATION
     Dosage: UNK
     Route: 065
     Dates: start: 20180307, end: 20180307

REACTIONS (6)
  - Cough [Unknown]
  - Wheezing [Unknown]
  - Gastrointestinal infection [Unknown]
  - Sneezing [Unknown]
  - Cardiac disorder [Unknown]
  - Dyspnoea [Unknown]
